FAERS Safety Report 8261499-6 (Version None)
Quarter: 2012Q2

REPORT INFORMATION
  Report Type: 
  Country: None (occurrence: None)
  Receive Date: 20120405
  Receipt Date: 20120328
  Transmission Date: 20120825
  Serious: Yes (Other)
  Sender: FDA-Public Use
  Company Number: US-VERTEX PHARMACEUTICALS INC.-AE-2012-004501

PATIENT
  Sex: Male
  Weight: 95.34 kg

DRUGS (3)
  1. INCIVEK [Suspect]
     Indication: HEPATITIS C
     Route: 048
     Dates: start: 20120309, end: 20120328
  2. PEGASYS [Concomitant]
     Indication: HEPATITIS C
     Route: 058
     Dates: start: 20120309, end: 20120328
  3. RIBAVIRIN [Concomitant]
     Indication: HEPATITIS C
     Dates: start: 20120309, end: 20120328

REACTIONS (6)
  - SUICIDAL IDEATION [None]
  - VOMITING [None]
  - APHAGIA [None]
  - NEGATIVE THOUGHTS [None]
  - DEPRESSED MOOD [None]
  - BEDRIDDEN [None]
